FAERS Safety Report 20172523 (Version 2)
Quarter: 2022Q1

REPORT INFORMATION
  Report Type: Spontaneous
  Country: US (occurrence: US)
  Receive Date: 20211210
  Receipt Date: 20220309
  Transmission Date: 20220424
  Serious: Yes (Disabling, Other)
  Sender: FDA-Public Use
  Company Number: US-009507513-2107USA004314

PATIENT
  Sex: Female

DRUGS (2)
  1. ZOSTAVAX [Suspect]
     Active Substance: VARICELLA-ZOSTER VIRUS STRAIN OKA/MERCK LIVE ANTIGEN
     Indication: Prophylaxis
     Dosage: .65 MILLILITER
     Route: 058
     Dates: start: 20140116
  2. STERILE DILUENT (WATER) [Suspect]
     Active Substance: WATER
     Dosage: UNK
     Dates: start: 20140116

REACTIONS (11)
  - Deafness unilateral [Not Recovered/Not Resolved]
  - Herpes zoster [Unknown]
  - Vaccination site nodule [Unknown]
  - Vaccination site movement impairment [Unknown]
  - Vaccination site hypoaesthesia [Unknown]
  - Tinnitus [Unknown]
  - Vaccination site swelling [Unknown]
  - Vaccination site discomfort [Unknown]
  - Vaccination site warmth [Unknown]
  - Anxiety [Unknown]
  - Blood cholesterol abnormal [Unknown]

NARRATIVE: CASE EVENT DATE: 20140101
